FAERS Safety Report 18601812 (Version 1)
Quarter: 2020Q4

REPORT INFORMATION
  Report Type: Spontaneous
  Country: US (occurrence: US)
  Receive Date: 20201210
  Receipt Date: 20201210
  Transmission Date: 20210114
  Serious: Yes (Hospitalization, Other)
  Sender: FDA-Public Use
  Company Number: US-TEVA-2020-US-1856332

PATIENT
  Age: 43 Year
  Sex: Male

DRUGS (9)
  1. 5-FLUOROURACIL [Suspect]
     Active Substance: FLUOROURACIL
     Indication: COLON CANCER STAGE III
     Dosage: PART OF FOLFOX REGIMEN STARTED IN APRIL 2019, WITH A SCHEDULE OF 9 CYCLES; INFUSED VIA CONTINUOUS...
     Route: 041
     Dates: start: 201904
  2. LEUCOVORIN. [Suspect]
     Active Substance: LEUCOVORIN
     Indication: CHEMOTHERAPY SIDE EFFECT PROPHYLAXIS
     Dosage: PART OF FOLFOX REGIMEN STARTED IN APRIL 2019, WITH A SCHEDULE OF 9 CYCLES
     Route: 065
     Dates: start: 201904
  3. PANTOPRAZOLE SODIUM. [Concomitant]
     Active Substance: PANTOPRAZOLE SODIUM
     Indication: PRODUCT USED FOR UNKNOWN INDICATION
     Route: 048
  4. ESCITALOPRAM [Concomitant]
     Active Substance: ESCITALOPRAM OXALATE
     Indication: PRODUCT USED FOR UNKNOWN INDICATION
     Dosage: 20 MILLIGRAM DAILY;
     Route: 048
  5. CAPECITABINE. [Suspect]
     Active Substance: CAPECITABINE
     Indication: COLON CANCER STAGE III
     Dosage: 2000 MG/M2 DAILY; SPLIT INTO TWO DOSES ON DAYS 1 THROUGH 14
     Route: 065
     Dates: start: 2019
  6. POLYETHYLENE GLYCOL 3350. [Concomitant]
     Active Substance: POLYETHYLENE GLYCOL 3350
     Indication: PRODUCT USED FOR UNKNOWN INDICATION
     Dosage: AS DIRECTED
     Route: 048
  7. OXALIPLATIN. [Suspect]
     Active Substance: OXALIPLATIN
     Indication: COLON CANCER STAGE III
     Dosage: ON DAY 1 EVERY 21 DAYS FOR A SCHEDULE OF EIGHT CYCLES
     Route: 065
     Dates: start: 2019
  8. OXALIPLATIN. [Suspect]
     Active Substance: OXALIPLATIN
     Dosage: PART OF FOLFOX REGIMEN STARTED IN APRIL 2019, WITH A SCHEDULE OF 9 CYCLES
     Route: 065
     Dates: start: 201904
  9. PROPRANOLOL [Concomitant]
     Active Substance: PROPRANOLOL HYDROCHLORIDE
     Indication: PRODUCT USED FOR UNKNOWN INDICATION
     Dosage: 30 MILLIGRAM DAILY; THREE TIMES DAILY
     Route: 048

REACTIONS (4)
  - Deep vein thrombosis [Recovered/Resolved]
  - Pulmonary embolism [Recovered/Resolved]
  - Administration site extravasation [Recovered/Resolved]
  - Drug intolerance [Unknown]
